FAERS Safety Report 8564229-3 (Version None)
Quarter: 2012Q3

REPORT INFORMATION
  Report Type: 
  Country: None (occurrence: None)
  Receive Date: 20120803
  Receipt Date: 20120724
  Transmission Date: 20120928
  Serious: Yes (Hospitalization, Other)
  Sender: FDA-Public Use
  Company Number: NL-JNJFOC-20120713347

PATIENT

DRUGS (2)
  1. APAP TAB [Suspect]
     Indication: PRODUCT USED FOR UNKNOWN INDICATION
     Route: 065
  2. APAP TAB [Suspect]
     Route: 065

REACTIONS (4)
  - PLASMIN INHIBITOR INCREASED [None]
  - LIVER INJURY [None]
  - ACUTE HEPATIC FAILURE [None]
  - PLASMINOGEN ACTIVATOR INHIBITOR [None]
